FAERS Safety Report 9719420 (Version 2)
Quarter: 2013Q4

REPORT INFORMATION
  Report Type: Report from Study
  Country: DE (occurrence: DE)
  Receive Date: 20131128
  Receipt Date: 20131128
  Transmission Date: 20140711
  Serious: Yes (Hospitalization)
  Sender: FDA-Public Use
  Company Number: DE-ROCHE-1302236

PATIENT
  Age: 60 Year
  Sex: Female
  Weight: 59 kg

DRUGS (1)
  1. TOCILIZUMAB [Suspect]
     Indication: RHEUMATOID ARTHRITIS
     Dosage: LAST TOCILIZUMAB ADMINISTRATION ON 07/MAY/2013
     Route: 042
     Dates: start: 20120319

REACTIONS (3)
  - Lymphocytosis [Not Recovered/Not Resolved]
  - Leukopenia [Recovering/Resolving]
  - Myelodysplastic syndrome [Not Recovered/Not Resolved]
